FAERS Safety Report 6783819-1 (Version None)
Quarter: 2010Q2

REPORT INFORMATION
  Report Type: 
  Country: None (occurrence: None)
  Receive Date: 20100622
  Receipt Date: 20100609
  Transmission Date: 20101027
  Serious: Yes (Other)
  Sender: FDA-Public Use
  Company Number: PHHY2010US38411

PATIENT
  Sex: Male
  Weight: 105 kg

DRUGS (1)
  1. EXJADE [Suspect]
     Indication: HAEMOCHROMATOSIS
     Dosage: 500 MG, TID
     Route: 048
     Dates: start: 20100504

REACTIONS (6)
  - AMBLYOPIA [None]
  - BLOOD POTASSIUM DECREASED [None]
  - FLIGHT OF IDEAS [None]
  - LABORATORY TEST ABNORMAL [None]
  - NIGHT SWEATS [None]
  - TREMOR [None]
